FAERS Safety Report 6837133-6 (Version None)
Quarter: 2010Q3

REPORT INFORMATION
  Report Type: 
  Country: None (occurrence: None)
  Receive Date: 20100713
  Receipt Date: 20070506
  Transmission Date: 20110219
  Serious: No
  Sender: FDA-Public Use
  Company Number: US-PFIZER INC-2007036879

PATIENT
  Sex: Female
  Weight: 61 kg

DRUGS (3)
  1. CHANTIX [Suspect]
     Indication: SMOKING CESSATION THERAPY
     Dates: start: 20070501
  2. AMITRIPTYLINE HYDROCHLORIDE [Interacting]
     Indication: DEPRESSION
  3. VIVELLE [Concomitant]
     Route: 062

REACTIONS (3)
  - DRUG INTERACTION [None]
  - FATIGUE [None]
  - FEELING ABNORMAL [None]
